FAERS Safety Report 5507600-6 (Version None)
Quarter: 2007Q4

REPORT INFORMATION
  Report Type: 
  Country: None (occurrence: None)
  Receive Date: 20071102
  Receipt Date: 20071030
  Transmission Date: 20080405
  Serious: Yes (Hospitalization)
  Sender: FDA-Public Use
  Company Number: 2007-01335

PATIENT
  Age: 78 Year
  Sex: Female
  Weight: 80 kg

DRUGS (3)
  1. VELCADE [Suspect]
     Indication: MULTIPLE MYELOMA
     Dosage: 2.00 MG, INTRAVENOUS
     Route: 042
     Dates: start: 20070322, end: 20070419
  2. THALIDOMIDE [Suspect]
     Indication: MULTIPLE MYELOMA
     Dosage: 100.00 , ORAL
     Route: 048
     Dates: start: 20070322, end: 20070502
  3. PREDNISONE TAB [Suspect]
     Indication: MULTIPLE MYELOMA
     Dosage: 100.00, ORAL
     Route: 048
     Dates: start: 20070322, end: 20070325

REACTIONS (2)
  - BRONCHOSPASM [None]
  - ECZEMA [None]
